FAERS Safety Report 4710458-6 (Version None)
Quarter: 2005Q3

REPORT INFORMATION
  Report Type: 
  Country: None (occurrence: None)
  Receive Date: 20050711
  Receipt Date: 20050628
  Transmission Date: 20060218
  Serious: Yes (Death)
  Sender: FDA-Public Use
  Company Number: JP-JNJFOC-20050607157

PATIENT
  Age: 83 Year
  Sex: Male

DRUGS (7)
  1. OFLOCET [Suspect]
     Indication: DRUG USE FOR UNKNOWN INDICATION
     Route: 042
     Dates: start: 20030704, end: 20030716
  2. FLAGYL [Suspect]
     Indication: DRUG USE FOR UNKNOWN INDICATION
     Route: 042
     Dates: start: 20030704, end: 20030717
  3. AUGMENTIN '125' [Suspect]
     Route: 049
     Dates: start: 20030704, end: 20030716
  4. AUGMENTIN '125' [Suspect]
     Indication: DRUG USE FOR UNKNOWN INDICATION
     Route: 049
     Dates: start: 20030704, end: 20030716
  5. ROCEPHIN [Suspect]
     Indication: DRUG USE FOR UNKNOWN INDICATION
     Route: 042
     Dates: start: 20030704, end: 20030716
  6. GLICLAZIDE [Concomitant]
  7. CIFLOX [Concomitant]

REACTIONS (13)
  - ACIDOSIS [None]
  - ANAEMIA [None]
  - ANURIA [None]
  - CLOSTRIDIUM COLITIS [None]
  - DIARRHOEA [None]
  - HYPERKALAEMIA [None]
  - HYPOGLYCAEMIA [None]
  - HYPOTENSION [None]
  - HYPOVOLAEMIC SHOCK [None]
  - MELAENA [None]
  - SEPSIS [None]
  - SEPTIC SHOCK [None]
  - SMALL INTESTINAL HAEMORRHAGE [None]
